FAERS Safety Report 8286006-3 (Version None)
Quarter: 2012Q2

REPORT INFORMATION
  Report Type: 
  Country: None (occurrence: None)
  Receive Date: 20120416
  Receipt Date: 20120406
  Transmission Date: 20120825
  Serious: Yes (Hospitalization)
  Sender: FDA-Public Use
  Company Number: US-BIOGENIDEC-2012BI010606

PATIENT
  Age: 46 Year
  Sex: Female

DRUGS (4)
  1. IBUPROFEN [Concomitant]
  2. ACTIVELLA [Concomitant]
  3. ESTRIADOL [Concomitant]
  4. TYSABRI [Suspect]
     Indication: MULTIPLE SCLEROSIS
     Route: 042
     Dates: start: 20090610

REACTIONS (5)
  - NEURALGIA [None]
  - KNEE OPERATION [None]
  - AUTOMATIC BLADDER [None]
  - MULTIPLE SCLEROSIS RELAPSE [None]
  - MULTIPLE SCLEROSIS [None]
